FAERS Safety Report 4931018-8 (Version None)
Quarter: 2006Q1

REPORT INFORMATION
  Report Type: 
  Country: None (occurrence: None)
  Receive Date: 20060227
  Receipt Date: 20060214
  Transmission Date: 20060701
  Serious: Yes (Hospitalization)
  Sender: FDA-Public Use
  Company Number: 2006-01-1368

PATIENT
  Age: 47 Year
  Sex: Female
  Weight: 55 kg

DRUGS (8)
  1. CLARITIN [Suspect]
     Indication: SEASONAL ALLERGY
     Dosage: 10MG 2TAB QD ORAL
     Route: 048
  2. LEVOTHYROX TABLETS [Concomitant]
  3. CALCIUM CARBONATE [Concomitant]
  4. ALFACALCIDOL [Concomitant]
  5. OPHTHALMIC PREPARATION (NOS) CAPSULES [Concomitant]
  6. VEXOL OPHTHALMIC SOLUTION [Concomitant]
  7. OPHTHALMIC PREPARATION (NOS) OPHTHALMIC SOLUTION [Concomitant]
  8. MINOXIDIL [Concomitant]

REACTIONS (4)
  - ALOPECIA [None]
  - HYPOCALCAEMIA [None]
  - HYPOTHYROIDISM [None]
  - PARAESTHESIA [None]
